FAERS Safety Report 19847819 (Version 2)
Quarter: 2021Q3

REPORT INFORMATION
  Report Type: Spontaneous
  Country: BE (occurrence: BE)
  Receive Date: 20210917
  Receipt Date: 20210923
  Transmission Date: 20211014
  Serious: Yes (Other)
  Sender: FDA-Public Use
  Company Number: BE-UCBSA-2021042656

PATIENT
  Sex: Female

DRUGS (2)
  1. BRIVARACETAM [Suspect]
     Active Substance: BRIVARACETAM
     Dosage: TAKES 1X 100 MG
     Dates: start: 202103
  2. BRIVARACETAM [Suspect]
     Active Substance: BRIVARACETAM
     Indication: PRODUCT USED FOR UNKNOWN INDICATION
     Dosage: USES 2X50 MG

REACTIONS (2)
  - Therapeutic product ineffective [Unknown]
  - Seizure [Unknown]
